FAERS Safety Report 9406014 (Version 3)
Quarter: 2013Q3

REPORT INFORMATION
  Report Type: Not Available
  Country: PT (occurrence: PT)
  Receive Date: 20130717
  Receipt Date: 20130912
  Transmission Date: 20140515
  Serious: Yes (Death, Life-Threatening, Hospitalization)
  Sender: FDA-Public Use
  Company Number: PT-NAPPMUNDI-DEU-2013-0012003

PATIENT
  Age: 60 Year
  Sex: Female

DRUGS (7)
  1. MST 10, 100MG, COMPRIMIDOS DE LIBERTACAO PROLONGADA [Suspect]
     Indication: NEURALGIA
     Dosage: 100 MG, BID
     Route: 048
     Dates: start: 20130415, end: 20130415
  2. MST 10, 100MG, COMPRIMIDOS DE LIBERTACAO PROLONGADA [Suspect]
     Indication: BACK PAIN
  3. RITUXIMAB [Concomitant]
     Indication: NON-HODGKIN^S LYMPHOMA
     Dosage: UNK
     Dates: start: 201210
  4. CYCLOPHOSPHAMIDE [Concomitant]
     Indication: NON-HODGKIN^S LYMPHOMA
     Dosage: UNK
     Dates: start: 201210
  5. DOXORUBICINE [Concomitant]
     Indication: NON-HODGKIN^S LYMPHOMA
     Dosage: UNK
     Dates: start: 201210
  6. VINCRISTINE [Concomitant]
     Indication: NON-HODGKIN^S LYMPHOMA
     Dosage: UNK
     Dates: start: 201210
  7. PREDNISONE [Concomitant]
     Indication: NON-HODGKIN^S LYMPHOMA
     Dosage: UNK
     Dates: start: 201210

REACTIONS (12)
  - Overdose [Recovering/Resolving]
  - Medication error [Recovering/Resolving]
  - Drug dispensing error [Recovering/Resolving]
  - Leukaemic infiltration brain [Fatal]
  - Pneumonia aspiration [Recovering/Resolving]
  - Shock [Recovered/Resolved]
  - Hypotension [Recovering/Resolving]
  - Respiratory arrest [Recovering/Resolving]
  - Respiratory failure [Recovering/Resolving]
  - Ischaemia [Recovering/Resolving]
  - Rhabdomyolysis [Recovering/Resolving]
  - Acidosis [Recovering/Resolving]
